FAERS Safety Report 5582995-6 (Version None)
Quarter: 2007Q4

REPORT INFORMATION
  Report Type: 
  Country: None (occurrence: None)
  Receive Date: 20071231
  Receipt Date: 20071219
  Transmission Date: 20080405
  Serious: Yes (Other)
  Sender: FDA-Public Use
  Company Number: GXKR2007TW10895

PATIENT
  Age: 48 Year
  Sex: Female

DRUGS (2)
  1. HALOPERIDOL [Suspect]
     Indication: SCHIZOPHRENIA
     Dosage: 5 0 MG/DAY
  2. QUETIAPINE (NGX)(QUETIAPINE) UNKNOWN [Suspect]
     Indication: SCHIZOPHRENIA
     Dosage: 200-400 MG/DAY

REACTIONS (9)
  - BRADYKINESIA [None]
  - DISTURBANCE IN ATTENTION [None]
  - DRUG WITHDRAWAL SYNDROME [None]
  - EMOTIONAL DISTRESS [None]
  - EXTRAPYRAMIDAL DISORDER [None]
  - SOCIAL PROBLEM [None]
  - TIC [None]
  - TREATMENT NONCOMPLIANCE [None]
  - TREMOR [None]
